FAERS Safety Report 20198589 (Version 2)
Quarter: 2022Q1

REPORT INFORMATION
  Report Type: Spontaneous
  Country: JP (occurrence: JP)
  Receive Date: 20211217
  Receipt Date: 20220204
  Transmission Date: 20220424
  Serious: Yes (Other)
  Sender: FDA-Public Use
  Company Number: JP-JNJFOC-20211230798

PATIENT
  Age: 20 Year
  Sex: Female
  Weight: 55.8 kg

DRUGS (6)
  1. OPSUMIT [Suspect]
     Active Substance: MACITENTAN
     Indication: Pulmonary arterial hypertension
     Dosage: DOSE UNKNOWN
     Route: 048
  2. SILDENAFIL CITRATE [Concomitant]
     Active Substance: SILDENAFIL CITRATE
     Dosage: DOSE UNKNOWN
     Route: 048
  3. TADALAFIL [Concomitant]
     Active Substance: TADALAFIL
     Dosage: DOSE UNKNOWN
     Route: 048
  4. RIOCIGUAT [Concomitant]
     Active Substance: RIOCIGUAT
     Dosage: DOSE UNKNOWN
     Route: 048
  5. SILDENAFIL CITRATE [Concomitant]
     Active Substance: SILDENAFIL CITRATE
     Dosage: DOSE UNKNOWN
     Route: 048
  6. ILOPROST [Concomitant]
     Active Substance: ILOPROST
     Dosage: DOSE UNKNOWN

REACTIONS (3)
  - Vascular resistance pulmonary increased [Recovering/Resolving]
  - Intracranial aneurysm [Unknown]
  - Headache [Recovered/Resolved]
